FAERS Safety Report 12885783 (Version 1)
Quarter: 2016Q4

REPORT INFORMATION
  Report Type: Spontaneous
  Country: US (occurrence: US)
  Receive Date: 20161025
  Receipt Date: 20161025
  Transmission Date: 20170207
  Serious: No
  Sender: FDA-Public Use
  Company Number: None

PATIENT
  Age: 41 Year
  Sex: Female

DRUGS (1)
  1. TYKERB [Suspect]
     Active Substance: LAPATINIB DITOSYLATE
     Dosage: 250 DF 5 TABLETS QD ORAL
     Route: 048
     Dates: start: 20160831

REACTIONS (1)
  - Depression [None]

NARRATIVE: CASE EVENT DATE: 20161025
